FAERS Safety Report 6484518-6 (Version None)
Quarter: 2009Q4

REPORT INFORMATION
  Report Type: 
  Country: None (occurrence: None)
  Receive Date: 20091209
  Receipt Date: 20091202
  Transmission Date: 20100525
  Serious: Yes (Hospitalization)
  Sender: FDA-Public Use
  Company Number: PHHY2009DE52356

PATIENT
  Sex: Male
  Weight: 102 kg

DRUGS (6)
  1. ALISKIREN ALI+ [Suspect]
     Indication: HYPERTENSION
     Dosage: 1 DF DAILY
     Route: 048
     Dates: start: 20090211, end: 20090223
  2. RASILEZ HCT [Suspect]
     Indication: HYPERTENSION
     Dosage: 1 DF DAILY
     Route: 048
     Dates: start: 20090223
  3. ASPIRIN [Concomitant]
     Dosage: 100 MG DAILY
  4. RAMIPRIL [Concomitant]
     Dosage: 10MG DAILY
  5. CARMEN [Concomitant]
     Dosage: 20MG DAILY
  6. SIMVASTATIN [Concomitant]
     Dosage: 20MG DAILY

REACTIONS (4)
  - ANGINA PECTORIS [None]
  - ATRIOVENTRICULAR BLOCK [None]
  - CARDIAC PACEMAKER INSERTION [None]
  - DYSPNOEA [None]
